FAERS Safety Report 13526093 (Version 2)
Quarter: 2017Q2

REPORT INFORMATION
  Report Type: Spontaneous
  Country: FR (occurrence: FR)
  Receive Date: 20170509
  Receipt Date: 20170512
  Transmission Date: 20170830
  Serious: Yes (Other)
  Sender: FDA-Public Use
  Company Number: FR-009507513-1705FRA003521

PATIENT
  Age: 71 Year
  Sex: Female

DRUGS (13)
  1. FASTURTEC [Suspect]
     Active Substance: RASBURICASE
     Indication: TUMOUR LYSIS SYNDROME
     Dosage: UNK
     Route: 042
     Dates: start: 20170411, end: 20170412
  2. PHLOROGLUCINOL [Concomitant]
     Active Substance: PHLOROGLUCINOL
  3. ESBERIVEN (COUMARIN) [Concomitant]
  4. MABTHERA [Suspect]
     Active Substance: RITUXIMAB
     Indication: MANTLE CELL LYMPHOMA
     Dosage: UNK
     Route: 042
     Dates: start: 20170412, end: 2017
  5. BENDAMUSTINE [Suspect]
     Active Substance: BENDAMUSTINE
     Indication: MANTLE CELL LYMPHOMA
     Dosage: UNK
     Route: 042
     Dates: start: 20170412, end: 2017
  6. PANTOPRAZOLE [Concomitant]
     Active Substance: PANTOPRAZOLE
  7. METOCLOPRAMIDE. [Concomitant]
     Active Substance: METOCLOPRAMIDE
  8. BACTRIM [Suspect]
     Active Substance: SULFAMETHOXAZOLE\TRIMETHOPRIM
     Dosage: UNK
     Route: 048
     Dates: start: 20170413, end: 201704
  9. COZAAR [Concomitant]
     Active Substance: LOSARTAN POTASSIUM
     Route: 048
  10. EMEND [Suspect]
     Active Substance: APREPITANT
     Dosage: UNK
     Route: 048
     Dates: start: 20170412, end: 20170415
  11. CYTARABINE. [Suspect]
     Active Substance: CYTARABINE
     Indication: MANTLE CELL LYMPHOMA
     Dosage: UNK
     Route: 042
     Dates: start: 20170412, end: 2017
  12. LORAZEPAM. [Concomitant]
     Active Substance: LORAZEPAM
  13. VALACYCLOVIR HYDROCHLORIDE. [Concomitant]
     Active Substance: VALACYCLOVIR HYDROCHLORIDE

REACTIONS (3)
  - Thrombocytopenia [Not Recovered/Not Resolved]
  - Condition aggravated [Not Recovered/Not Resolved]
  - Normochromic normocytic anaemia [Not Recovered/Not Resolved]

NARRATIVE: CASE EVENT DATE: 20170413
